FAERS Safety Report 8413251-6 (Version None)
Quarter: 2012Q2

REPORT INFORMATION
  Report Type: 
  Country: None (occurrence: None)
  Receive Date: 20120605
  Receipt Date: 20120525
  Transmission Date: 20120825
  Serious: Yes (Hospitalization, Congenital Anomaly, Other)
  Sender: FDA-Public Use
  Company Number: US-PFIZER INC-2012128856

PATIENT
  Sex: Male
  Weight: 3.41 kg

DRUGS (2)
  1. ZOLOFT [Suspect]
     Indication: DEPRESSION
     Dosage: 100 MG, 1X/DAY
     Route: 064
     Dates: start: 20000116
  2. MULTI-VITAMINS [Concomitant]
     Route: 064

REACTIONS (8)
  - AORTIC VALVE INCOMPETENCE [None]
  - JEJUNAL STENOSIS [None]
  - PATENT DUCTUS ARTERIOSUS [None]
  - MATERNAL EXPOSURE TIMING UNSPECIFIED [None]
  - PERSISTENT FOETAL CIRCULATION [None]
  - ATRIAL SEPTAL DEFECT [None]
  - DILATATION VENTRICULAR [None]
  - GASTROSCHISIS [None]
